FAERS Safety Report 6157617-6 (Version None)
Quarter: 2009Q2

REPORT INFORMATION
  Report Type: 
  Country: None (occurrence: None)
  Receive Date: 20090414
  Receipt Date: 20090406
  Transmission Date: 20091009
  Serious: Yes (Other)
  Sender: FDA-Public Use
  Company Number: 2009SP007463

PATIENT
  Age: 46 Year
  Sex: Female

DRUGS (2)
  1. INTRON A [Suspect]
     Indication: HEPATITIS C
     Dates: start: 20090129
  2. RIBAVIRIN [Suspect]
     Indication: HEPATITIS C
     Dosage: PO
     Route: 048
     Dates: start: 20090129

REACTIONS (3)
  - ARRHYTHMIA [None]
  - PHOTOSENSITIVITY REACTION [None]
  - RASH MACULAR [None]
